FAERS Safety Report 10921447 (Version 2)
Quarter: 2015Q2

REPORT INFORMATION
  Report Type: Report from Study
  Country: JP (occurrence: JP)
  Receive Date: 20150317
  Receipt Date: 20150406
  Transmission Date: 20150821
  Serious: Yes (Hospitalization)
  Sender: FDA-Public Use
  Company Number: JP-ASTRAZENECA-2015SE24269

PATIENT
  Age: 28388 Day
  Sex: Male

DRUGS (13)
  1. FP-OD [Concomitant]
     Active Substance: SELEGILINE HYDROCHLORIDE
  2. BUFFERIN [Concomitant]
     Active Substance: ASPIRIN
  3. MENESIT [Concomitant]
     Active Substance: CARBIDOPA\LEVODOPA
  4. COMTAN [Concomitant]
     Active Substance: ENTACAPONE
  5. DOPS OD [Concomitant]
     Active Substance: DROXIDOPA
  6. ONGLYZA [Suspect]
     Active Substance: SAXAGLIPTIN HYDROCHLORIDE
     Indication: TYPE 2 DIABETES MELLITUS
     Route: 048
     Dates: start: 20140728
  7. SYMMETREL [Concomitant]
     Active Substance: AMANTADINE HYDROCHLORIDE
     Route: 048
  8. GLUFAST [Concomitant]
     Active Substance: MITIGLINIDE
  9. METFORMIN [Concomitant]
     Active Substance: METFORMIN HYDROCHLORIDE
     Dates: end: 20141112
  10. TRERIEF [Concomitant]
     Active Substance: ZONISAMIDE
  11. AZILVA [Concomitant]
     Active Substance: AZILSARTAN KAMEDOXOMIL
  12. CONIEL [Concomitant]
     Active Substance: BENIDIPINE HYDROCHLORIDE
  13. THYRADIN S [Concomitant]
     Active Substance: LEVOTHYROXINE SODIUM
     Route: 048

REACTIONS (1)
  - Decubitus ulcer [Recovering/Resolving]

NARRATIVE: CASE EVENT DATE: 20140731
